FAERS Safety Report 12043175 (Version 1)
Quarter: 2016Q1

REPORT INFORMATION
  Report Type: Spontaneous
  Country: US (occurrence: US)
  Receive Date: 20160208
  Receipt Date: 20160208
  Transmission Date: 20160526
  Serious: No
  Sender: FDA-Public Use
  Company Number: US-ABBVIE-15P-163-1405768-00

PATIENT
  Age: 40 Year

DRUGS (2)
  1. HUMIRA [Suspect]
     Active Substance: ADALIMUMAB
     Indication: PRODUCT USED FOR UNKNOWN INDICATION
     Route: 065
  2. HUMIRA [Suspect]
     Active Substance: ADALIMUMAB
     Route: 065

REACTIONS (9)
  - Inflammation [Unknown]
  - Arthropathy [Unknown]
  - Drug hypersensitivity [Unknown]
  - Rash [Unknown]
  - Psoriasis [Not Recovered/Not Resolved]
  - Drug effect decreased [Unknown]
  - Herpes zoster [Recovered/Resolved]
  - Unevaluable event [Unknown]
  - Cardiac disorder [Unknown]

NARRATIVE: CASE EVENT DATE: 201505
